FAERS Safety Report 7288866-1 (Version None)
Quarter: 2011Q1

REPORT INFORMATION
  Report Type: 
  Country: None (occurrence: None)
  Receive Date: 20110211
  Receipt Date: 20110207
  Transmission Date: 20110831
  Serious: Yes (Death)
  Sender: FDA-Public Use
  Company Number: BR-ASTRAZENECA-2010SE44743

PATIENT
  Age: 39 Year
  Sex: Female

DRUGS (3)
  1. NEUTROFER [Suspect]
     Indication: ANAEMIA
     Route: 048
     Dates: start: 20100301
  2. SYMBICORT [Suspect]
     Indication: ASTHMA
     Dosage: 160/4.5 MCG OD
     Route: 055
     Dates: start: 20100920
  3. DAMATER [Suspect]
     Indication: VITAMIN SUPPLEMENTATION
     Route: 048
     Dates: start: 20100920

REACTIONS (2)
  - DRUG EXPOSURE DURING PREGNANCY [None]
  - COMPLICATION OF DELIVERY [None]
